FAERS Safety Report 9813159 (Version 1)
Quarter: 2014Q1

REPORT INFORMATION
  Report Type: Report from Study
  Country: US (occurrence: US)
  Receive Date: 20140113
  Receipt Date: 20140113
  Transmission Date: 20141002
  Serious: Yes (Life-Threatening, Hospitalization)
  Sender: FDA-Public Use
  Company Number: US-JNJFOC-20140104600

PATIENT
  Age: 19 Year
  Sex: Male

DRUGS (1)
  1. NUCYNTA ER [Suspect]
     Indication: PRODUCT USED FOR UNKNOWN INDICATION
     Dosage: 50 OF 50MG TABLETS
     Route: 048

REACTIONS (5)
  - Overdose [Unknown]
  - Blood thyroid stimulating hormone increased [Unknown]
  - Tachycardia [Unknown]
  - Somnolence [Unknown]
  - Blood pressure decreased [Unknown]
